FAERS Safety Report 9617278 (Version 1)
Quarter: 2013Q4

REPORT INFORMATION
  Report Type: Spontaneous
  Country: US (occurrence: US)
  Receive Date: 20131011
  Receipt Date: 20131011
  Transmission Date: 20140711
  Serious: Yes (Other)
  Sender: FDA-Public Use
  Company Number: US-MYLANLABS-2013S1022409

PATIENT
  Age: 4 Year
  Sex: 0

DRUGS (6)
  1. ULTIVA FOR INJECTION [Suspect]
     Indication: ANAESTHESIA
     Dosage: 1 MCG/KG BOLUS
     Route: 042
     Dates: start: 2013, end: 2013
  2. ULTIVA FOR INJECTION [Suspect]
     Indication: ANAESTHESIA
     Dosage: 0.2 UG/KG/MIN
     Route: 042
     Dates: start: 2013, end: 2013
  3. ULTIVA FOR INJECTION [Suspect]
     Indication: ANAESTHESIA
     Dosage: 0.4UG/KG/MIN
     Route: 042
     Dates: start: 2013, end: 2013
  4. ULTIVA FOR INJECTION [Suspect]
     Indication: ANAESTHESIA
     Dosage: 0.6UG/KG/MIN
     Route: 042
     Dates: start: 2013, end: 2013
  5. PROPOFOL [Concomitant]
     Dosage: RUN AT 200UG/KG/MIN
     Route: 042
  6. CISATRACURIUM [Concomitant]

REACTIONS (2)
  - Hypertension [Recovered/Resolved]
  - Bradycardia [Recovered/Resolved]
